FAERS Safety Report 21712456 (Version 2)
Quarter: 2023Q2

REPORT INFORMATION
  Report Type: Spontaneous
  Country: US (occurrence: US)
  Receive Date: 20221212
  Receipt Date: 20230412
  Transmission Date: 20230721
  Serious: No
  Sender: FDA-Public Use
  Company Number: US-LEO Pharma-346883

PATIENT
  Sex: Female

DRUGS (12)
  1. ADBRY [Suspect]
     Active Substance: TRALOKINUMAB-LDRM
     Indication: Dermatitis atopic
     Dosage: DOSAGE: INJECT 4 SYRINGES, 600 MG UNDER THE SKIN ON DAY 1
     Route: 058
     Dates: start: 20221108, end: 20221108
  2. ADBRY [Suspect]
     Active Substance: TRALOKINUMAB-LDRM
     Indication: Dermatitis atopic
     Dosage: DOSAGE: INJECT 4 SYRINGES, 600 MG UNDER THE SKIN ON DAY 1
     Route: 058
     Dates: start: 20221108, end: 20221108
  3. ADBRY [Suspect]
     Active Substance: TRALOKINUMAB-LDRM
     Indication: Dermatitis atopic
     Dosage: DOSAGE: INJECT 4 SYRINGES, 600 MG UNDER THE SKIN ON DAY 1
     Route: 058
     Dates: start: 20221108, end: 20221108
  4. ADBRY [Suspect]
     Active Substance: TRALOKINUMAB-LDRM
     Indication: Dermatitis atopic
     Dosage: DOSAGE: INJECT 4 SYRINGES, 600 MG UNDER THE SKIN ON DAY 1
     Route: 058
     Dates: start: 20221108, end: 20221108
  5. ADBRY [Suspect]
     Active Substance: TRALOKINUMAB-LDRM
     Indication: Dermatitis atopic
     Dosage: DOSAGE: MAINTENANCE DOSING AS DIRECTED ON DAY 15; 2 SYRINGES, 300 MG UNDER THE SKIN EVERY 2 WEEKS
     Route: 058
     Dates: start: 20221122, end: 202303
  6. ADBRY [Suspect]
     Active Substance: TRALOKINUMAB-LDRM
     Indication: Dermatitis atopic
     Dosage: DOSAGE: MAINTENANCE DOSING AS DIRECTED ON DAY 15; 2 SYRINGES, 300 MG UNDER THE SKIN EVERY 2 WEEKS
     Route: 058
     Dates: start: 20221122, end: 202303
  7. ADBRY [Suspect]
     Active Substance: TRALOKINUMAB-LDRM
     Indication: Dermatitis atopic
     Dosage: DOSAGE: MAINTENANCE DOSING AS DIRECTED ON DAY 15; 2 SYRINGES, 300 MG UNDER THE SKIN EVERY 2 WEEKS
     Route: 058
     Dates: start: 20221122, end: 202303
  8. ADBRY [Suspect]
     Active Substance: TRALOKINUMAB-LDRM
     Indication: Dermatitis atopic
     Dosage: DOSAGE: MAINTENANCE DOSING AS DIRECTED ON DAY 15; 2 SYRINGES, 300 MG UNDER THE SKIN EVERY 2 WEEKS
     Route: 058
     Dates: start: 20221122, end: 202303
  9. VENTOLIN [Concomitant]
     Active Substance: ALBUTEROL SULFATE
     Indication: Asthma
  10. METFORMIN [Concomitant]
     Active Substance: METFORMIN HYDROCHLORIDE
     Indication: Diabetes mellitus
  11. AMLODIPINE [Concomitant]
     Active Substance: AMLODIPINE BESYLATE
     Indication: Hypertension
  12. LANTUS [Concomitant]
     Active Substance: INSULIN GLARGINE
     Indication: Diabetes mellitus

REACTIONS (7)
  - Drug ineffective [Unknown]
  - Asthenia [Unknown]
  - Nausea [Unknown]
  - Dizziness [Unknown]
  - Palpitations [Unknown]
  - Diarrhoea [Unknown]
  - Headache [Unknown]
